FAERS Safety Report 5277948-1 (Version None)
Quarter: 2007Q1

REPORT INFORMATION
  Report Type: 
  Country: None (occurrence: None)
  Receive Date: 20070321
  Receipt Date: 20070313
  Transmission Date: 20070707
  Serious: Yes (Hospitalization)
  Sender: FDA-Public Use
  Company Number: 163-20785-06070090

PATIENT
  Age: 42 Year
  Sex: Female

DRUGS (9)
  1. THALOMID [Suspect]
     Indication: MULTIPLE MYELOMA
     Dosage: 100 MG, 2 IN 1 D, ORAL, 200 MG, DAILY, ORAL
     Route: 048
     Dates: start: 20060605, end: 20061218
  2. THALOMID [Suspect]
     Indication: MULTIPLE MYELOMA
     Dosage: 100 MG, 2 IN 1 D, ORAL, 200 MG, DAILY, ORAL
     Route: 048
     Dates: start: 20060629
  3. DECADRON [Suspect]
     Indication: DRUG USE FOR UNKNOWN INDICATION
     Dosage: 40 MG, AT 6:00PM
  4. DIURETICS (DIURETICS) [Concomitant]
  5. LASIX [Concomitant]
  6. METOLAZONE [Concomitant]
  7. ALDACTONE [Concomitant]
  8. SYNTHROID [Concomitant]
  9. POTASSIUM (POTASSIUM) [Concomitant]

REACTIONS (16)
  - AMYLOIDOSIS [None]
  - CARDIOMEGALY [None]
  - DISEASE PROGRESSION [None]
  - EXOPHTHALMOS [None]
  - GENERALISED OEDEMA [None]
  - HYPONATRAEMIA [None]
  - HYPOVOLAEMIA [None]
  - INCOHERENT [None]
  - LEUKOCYTOSIS [None]
  - LOSS OF CONSCIOUSNESS [None]
  - MUSCULOSKELETAL STIFFNESS [None]
  - ORTHOSTATIC HYPOTENSION [None]
  - PAIN IN EXTREMITY [None]
  - PRURITUS [None]
  - RENAL FAILURE [None]
  - URINARY INCONTINENCE [None]
